FAERS Safety Report 4437256-5 (Version None)
Quarter: 2004Q3

REPORT INFORMATION
  Report Type: 
  Country: None (occurrence: None)
  Receive Date: 20040728
  Receipt Date: 20040427
  Transmission Date: 20050211
  Serious: No
  Sender: FDA-Public Use
  Company Number: WAES 0404USA02316

PATIENT
  Age: 27 Year
  Sex: Female
  Weight: 83.0083 kg

DRUGS (9)
  1. EMEND [Suspect]
     Indication: PROPHYLACTIC CHEMOTHERAPY
     Dosage: 125 MG/1X/PO; SEE IMAGE
     Route: 048
     Dates: start: 20040406, end: 20040406
  2. EMEND [Suspect]
     Indication: PROPHYLACTIC CHEMOTHERAPY
     Dosage: 125 MG/1X/PO; SEE IMAGE
     Route: 048
     Dates: start: 20040407, end: 20040408
  3. EMEND [Suspect]
     Indication: PROPHYLACTIC CHEMOTHERAPY
     Dosage: 125 MG/1X/PO; SEE IMAGE
     Route: 048
     Dates: start: 20040419, end: 20040419
  4. EMEND [Suspect]
     Indication: PROPHYLACTIC CHEMOTHERAPY
     Dosage: 125 MG/1X/PO; SEE IMAGE
     Route: 048
     Dates: start: 20040420, end: 20040421
  5. ADRIAMYCIN PFS [Concomitant]
  6. ADRIAMYCIN PFS [Concomitant]
  7. CYTOXAN [Concomitant]
  8. ZOFRAN [Concomitant]
  9. DEXAMETHASONE [Concomitant]

REACTIONS (3)
  - DYSPHAGIA [None]
  - HYPOAESTHESIA [None]
  - HYPOREFLEXIA [None]
